FAERS Safety Report 7935116-6 (Version None)
Quarter: 2011Q4

REPORT INFORMATION
  Report Type: 
  Country: None (occurrence: None)
  Receive Date: 20111117
  Receipt Date: 20111110
  Transmission Date: 20120403
  Serious: Yes (Hospitalization, Other)
  Sender: FDA-Public Use
  Company Number: 2009SP017305

PATIENT
  Age: 31 Year
  Sex: Female
  Weight: 84.8226 kg

DRUGS (3)
  1. TOPROL-XL [Concomitant]
  2. NUVARING [Suspect]
     Indication: CONTRACEPTION
     Dosage: 1 DF;
     Dates: start: 20060401, end: 20061101
  3. RESTORIL [Concomitant]

REACTIONS (26)
  - PELVIC PAIN [None]
  - SWELLING [None]
  - CEREBRAL VENOUS THROMBOSIS [None]
  - COAGULATION FACTOR VIII LEVEL INCREASED [None]
  - LIGAMENT SPRAIN [None]
  - CHEST PAIN [None]
  - ARNOLD-CHIARI MALFORMATION [None]
  - HYPOAESTHESIA [None]
  - WEIGHT DECREASED [None]
  - ANOVULATORY CYCLE [None]
  - INTRACRANIAL VENOUS SINUS THROMBOSIS [None]
  - HAEMATURIA [None]
  - VITREOUS FLOATERS [None]
  - THROMBOPHLEBITIS [None]
  - VOMITING [None]
  - SUBARACHNOID HAEMORRHAGE [None]
  - BLOOD POTASSIUM DECREASED [None]
  - NAUSEA [None]
  - HYPERTENSION [None]
  - HIGH DENSITY LIPOPROTEIN INCREASED [None]
  - OVARIAN CYST [None]
  - DIARRHOEA [None]
  - SUBDURAL HAEMATOMA [None]
  - ARTERIOVENOUS MALFORMATION [None]
  - SOFT TISSUE INJURY [None]
  - ABDOMINAL PAIN LOWER [None]
